FAERS Safety Report 6107579-2 (Version None)
Quarter: 2009Q1

REPORT INFORMATION
  Report Type: 
  Country: None (occurrence: None)
  Receive Date: 20090309
  Receipt Date: 20090304
  Transmission Date: 20090719
  Serious: Yes (Other)
  Sender: FDA-Public Use
  Company Number: US-BRISTOL-MYERS SQUIBB COMPANY-14531990

PATIENT
  Sex: Female

DRUGS (2)
  1. ORENCIA [Suspect]
  2. ASPIRIN [Suspect]

REACTIONS (2)
  - LACERATION [None]
  - WRIST FRACTURE [None]
